FAERS Safety Report 20570268 (Version 4)
Quarter: 2023Q2

REPORT INFORMATION
  Report Type: Spontaneous
  Country: US (occurrence: US)
  Receive Date: 20220309
  Receipt Date: 20230427
  Transmission Date: 20230722
  Serious: Yes (Hospitalization, Disabling, Other)
  Sender: FDA-Public Use
  Company Number: US-ORGANON-O2203USA000826

PATIENT
  Sex: Male

DRUGS (4)
  1. SINGULAIR [Suspect]
     Active Substance: MONTELUKAST SODIUM
     Dosage: UNK
     Route: 048
     Dates: start: 2009, end: 2015
  2. SINGULAIR [Suspect]
     Active Substance: MONTELUKAST SODIUM
     Dosage: ONE PILL BY MOUTH QD (DAILY)
     Route: 048
     Dates: end: 20190731
  3. SINGULAIR [Suspect]
     Active Substance: MONTELUKAST SODIUM
     Dosage: UNK
     Route: 048
     Dates: start: 2003, end: 2007
  4. SINGULAIR [Suspect]
     Active Substance: MONTELUKAST SODIUM
     Dosage: UNK
     Route: 048
     Dates: start: 2015, end: 202003

REACTIONS (33)
  - Neuropsychiatric symptoms [Recovering/Resolving]
  - Stress [Recovering/Resolving]
  - Mental disorder [Unknown]
  - Sleep disorder [Recovering/Resolving]
  - Anxiety [Recovering/Resolving]
  - Tremor [Recovering/Resolving]
  - Depression [Recovering/Resolving]
  - Suicidal ideation [Recovering/Resolving]
  - Suicide attempt [Recovering/Resolving]
  - Suicidal ideation [Unknown]
  - Weight increased [Recovering/Resolving]
  - Attention deficit hyperactivity disorder [Recovering/Resolving]
  - Attention deficit hyperactivity disorder [Not Recovered/Not Resolved]
  - Asthma [Unknown]
  - Bronchitis [Unknown]
  - Acute sinusitis [Unknown]
  - Acute sinusitis [Unknown]
  - Bronchospasm [Unknown]
  - Pharyngitis [Unknown]
  - Rhinitis allergic [Unknown]
  - Seasonal allergy [Unknown]
  - Acute sinusitis [Unknown]
  - Conjunctivitis [Unknown]
  - Pharyngitis streptococcal [Unknown]
  - Urinary tract infection [Unknown]
  - Rhinitis allergic [Unknown]
  - Tinea barbae [Unknown]
  - Cough [Unknown]
  - Upper respiratory tract infection [Unknown]
  - Diarrhoea [Unknown]
  - Pyrexia [Unknown]
  - Nausea [Unknown]
  - Vomiting [Unknown]

NARRATIVE: CASE EVENT DATE: 20091103
